FAERS Safety Report 7454720-5 (Version None)
Quarter: 2011Q2

REPORT INFORMATION
  Report Type: 
  Country: None (occurrence: None)
  Receive Date: 20110503
  Receipt Date: 20100504
  Transmission Date: 20111010
  Serious: Yes (Hospitalization, Other)
  Sender: FDA-Public Use
  Company Number: US-PFIZER INC-2009218098

PATIENT
  Sex: Female
  Weight: 61 kg

DRUGS (6)
  1. PREMARIN [Suspect]
     Indication: HORMONE REPLACEMENT THERAPY
     Dosage: 0.3 MG, UNK
     Route: 048
     Dates: start: 19800101, end: 20020101
  2. FIORINAL [Concomitant]
     Indication: MIGRAINE
     Dosage: UNK
     Dates: start: 19650101, end: 20050101
  3. MEDROXYPROGESTERONE ACETATE [Suspect]
     Indication: HORMONE REPLACEMENT THERAPY
     Dosage: 5 MG, UNK
     Route: 048
     Dates: start: 19990101, end: 20020101
  4. PROVERA [Suspect]
     Indication: HORMONE REPLACEMENT THERAPY
     Dosage: 5 MG, UNK
     Route: 048
     Dates: start: 19800101, end: 20020101
  5. EXCEDRIN TENSION HEADACHE [Concomitant]
     Indication: HEADACHE
     Dosage: UNK
     Dates: start: 20010622, end: 20040801
  6. ADVIL LIQUI-GELS [Concomitant]
     Indication: HEADACHE
     Dosage: UNK
     Dates: start: 20010622, end: 20040801

REACTIONS (1)
  - BREAST CANCER [None]
